FAERS Safety Report 8238371-0 (Version None)
Quarter: 2012Q1

REPORT INFORMATION
  Report Type: 
  Country: None (occurrence: None)
  Receive Date: 20120327
  Receipt Date: 20120319
  Transmission Date: 20120608
  Serious: Yes (Hospitalization)
  Sender: FDA-Public Use
  Company Number: AU-ALLERGAN-1203652US

PATIENT
  Age: 67 Year
  Sex: Female
  Weight: 70 kg

DRUGS (4)
  1. ALVESCO [Concomitant]
     Indication: ASTHMA
     Route: 055
  2. MONOPRIL [Concomitant]
     Indication: BLOOD PRESSURE
     Route: 065
  3. OROXIN [Concomitant]
     Indication: THYROID DISORDER
     Route: 065
  4. OPTIVEA? [Suspect]
     Indication: DRY EYE
     Dosage: 2 GTT, SINGLE
     Route: 047
     Dates: start: 20110101, end: 20110101

REACTIONS (9)
  - EYELID PTOSIS [None]
  - RASH [None]
  - ASTHMA [None]
  - SWELLING FACE [None]
  - EYE DISCHARGE [None]
  - ANAPHYLACTIC REACTION [None]
  - EYELID OEDEMA [None]
  - PALLOR [None]
  - LACRIMATION INCREASED [None]
